FAERS Safety Report 8379669-5 (Version None)
Quarter: 2012Q2

REPORT INFORMATION
  Report Type: 
  Country: None (occurrence: None)
  Receive Date: 20120523
  Receipt Date: 20120517
  Transmission Date: 20120825
  Serious: No
  Sender: FDA-Public Use
  Company Number: US-ASTRAZENECA-2010SE47560

PATIENT
  Age: 40 Year
  Sex: Female

DRUGS (7)
  1. ZOFRAN [Concomitant]
  2. ZOMIG [Suspect]
     Indication: MIGRAINE
     Route: 048
     Dates: start: 20060101
  3. ZOMIG [Suspect]
     Dosage: ONE 2.5 MG DOSE
     Route: 048
  4. MICRODANTIN [Concomitant]
  5. PHENERGAN [Concomitant]
  6. WELLBUTRIN XL [Concomitant]
  7. ZOLOFT [Concomitant]

REACTIONS (3)
  - HEADACHE [None]
  - INTENTIONAL DRUG MISUSE [None]
  - MIGRAINE [None]
